FAERS Safety Report 18961608 (Version 1)
Quarter: 2021Q1

REPORT INFORMATION
  Report Type: Spontaneous
  Country: US (occurrence: US)
  Receive Date: 20210302
  Receipt Date: 20210302
  Transmission Date: 20210420
  Serious: No
  Sender: FDA-Public Use
  Company Number: US-TEVA-2021-US-1876569

PATIENT
  Age: 45 Year
  Sex: Female

DRUGS (1)
  1. AJOVY [Suspect]
     Active Substance: FREMANEZUMAB-VFRM
     Route: 065

REACTIONS (11)
  - Vertigo [Unknown]
  - Dizziness [Unknown]
  - Injection site urticaria [Unknown]
  - Neck pain [Unknown]
  - Injection site pain [Unknown]
  - Scab [Unknown]
  - Injection site scar [Unknown]
  - Alopecia [Unknown]
  - Weight increased [Unknown]
  - Injection site pruritus [Unknown]
  - Urticaria [Unknown]

NARRATIVE: CASE EVENT DATE: 20210114
